FAERS Safety Report 19691883 (Version 1)
Quarter: 2021Q3

REPORT INFORMATION
  Report Type: Spontaneous
  Country: US (occurrence: US)
  Receive Date: 20210812
  Receipt Date: 20210812
  Transmission Date: 20211014
  Serious: Yes (Other)
  Sender: FDA-Public Use
  Company Number: US-ORGANON-O2108USA000856

PATIENT
  Age: 57 Year
  Sex: Male

DRUGS (2)
  1. KETOCONAZOLE. [Suspect]
     Active Substance: KETOCONAZOLE
     Dosage: UNK
  2. PROSCAR [Suspect]
     Active Substance: FINASTERIDE
     Dosage: UNK
     Route: 048

REACTIONS (3)
  - Feeling abnormal [Recovered/Resolved]
  - Erectile dysfunction [Recovered/Resolved]
  - Libido decreased [Unknown]
